FAERS Safety Report 7012920-2 (Version None)
Quarter: 2010Q3

REPORT INFORMATION
  Report Type: 
  Country: None (occurrence: None)
  Receive Date: 20100924
  Receipt Date: 20100913
  Transmission Date: 20110219
  Serious: Yes (Other)
  Sender: FDA-Public Use
  Company Number: CN-PFIZER INC-2010115564

PATIENT
  Age: 45 Year
  Sex: Female

DRUGS (9)
  1. SOLU-MEDROL [Suspect]
     Indication: IDIOPATHIC THROMBOCYTOPENIC PURPURA
     Dosage: 80 MG, 1X/DAY
     Route: 041
     Dates: start: 20080805, end: 20080814
  2. SOLU-MEDROL [Suspect]
     Dosage: 60 MG, 1X/DAY
     Route: 041
     Dates: start: 20080815, end: 20080815
  3. TESTOSTERONE [Concomitant]
     Dosage: 2 ML, 3X/DAY
     Route: 030
     Dates: start: 20080810, end: 20080812
  4. TESTOSTERONE [Concomitant]
     Dosage: 2 ML, 2X/DAY
     Route: 030
     Dates: start: 20080812, end: 20080815
  5. PROGESTERONE [Concomitant]
     Dosage: 20 MG, 3X/DAY
     Route: 030
     Dates: start: 20080810, end: 20080812
  6. PROGESTERONE [Concomitant]
     Dosage: 20 MG, 2X/DAY
     Route: 030
     Dates: start: 20080812, end: 20080815
  7. DIETHYLSTILBESTROL [Concomitant]
     Dosage: 2 MG, 3X/DAY
     Route: 030
     Dates: start: 20080810, end: 20080812
  8. DIETHYLSTILBESTROL [Concomitant]
     Dosage: 2 MG, 2X/DAY
     Route: 030
     Dates: start: 20080812, end: 20080815
  9. AZITHROMYCIN [Concomitant]
     Dosage: 0.5 G, 1X/DAY
     Route: 041
     Dates: start: 20100810, end: 20100815

REACTIONS (4)
  - ALANINE AMINOTRANSFERASE INCREASED [None]
  - ASPARTATE AMINOTRANSFERASE INCREASED [None]
  - GAMMA-GLUTAMYLTRANSFERASE INCREASED [None]
  - HEPATIC LESION [None]
